FAERS Safety Report 9646161 (Version 1)
Quarter: 2013Q4

REPORT INFORMATION
  Report Type: Spontaneous
  Country: BR (occurrence: None)
  Receive Date: 20131024
  Receipt Date: 20131024
  Transmission Date: 20140711
  Serious: Yes (Other)
  Sender: FDA-Public Use
  Company Number: 2013RN000021

PATIENT
  Age: 50 Year
  Sex: Female

DRUGS (3)
  1. ZOVIRAX [Suspect]
     Indication: HERPES OPHTHALMIC
     Route: 048
  2. VALACICLOVIR HYDROCHLORIDE [Suspect]
     Indication: HERPES OPHTHALMIC
     Route: 048
  3. PREDNISONE [Suspect]
     Indication: SYSTEMIC LUPUS ERYTHEMATOSUS
     Route: 048

REACTIONS (8)
  - Retinal detachment [None]
  - Drug ineffective [None]
  - Prescribed overdose [None]
  - Herpes ophthalmic [None]
  - Abdominal pain upper [None]
  - Nausea [None]
  - Dizziness [None]
  - Condition aggravated [None]
